FAERS Safety Report 10180205 (Version 2)
Quarter: 2014Q2

REPORT INFORMATION
  Report Type: Spontaneous
  Country: CA (occurrence: None)
  Receive Date: 20140515
  Receipt Date: 20140528
  Transmission Date: 20141212
  Serious: Yes (Other)
  Sender: FDA-Public Use
  Company Number: 2014-CA-005426

PATIENT
  Age: 03 Month
  Sex: Male

DRUGS (4)
  1. ERWINASE [Suspect]
     Indication: CHLOROMA
     Dosage: 5 CYCLES, (2 INDUCTIONS AND 3 INTENSIFICATIONS)?
     Dates: end: 201112
  2. CYTARABINE (CYTARABINE) [Concomitant]
  3. ETOPOSIDE (ETOPOSIDE PHOSPHATE) [Concomitant]
  4. DAUNORUBICIN (DAUNORUBICIN HYDROCHLORIDE) [Concomitant]

REACTIONS (10)
  - Infection [None]
  - General physical health deterioration [None]
  - Septic shock [None]
  - Nausea [None]
  - Vomiting projectile [None]
  - Irritability [None]
  - Posturing [None]
  - Hypophagia [None]
  - Hydrocephalus [None]
  - Multiple sclerosis [None]
